FAERS Safety Report 23107310 (Version 3)
Quarter: 2023Q4

REPORT INFORMATION
  Report Type: Spontaneous
  Country: CA (occurrence: CA)
  Receive Date: 20231026
  Receipt Date: 20231111
  Transmission Date: 20240110
  Serious: Yes (Other)
  Sender: FDA-Public Use
  Company Number: CA-CELLTRION INC.-2023CA005144

PATIENT

DRUGS (7)
  1. INFLECTRA [Suspect]
     Active Substance: INFLIXIMAB-DYYB
     Indication: Crohn^s disease
     Dosage: 10 MG/KG, WEEK 0 RECEIVED AT HOSPITAL
     Route: 042
     Dates: start: 20230302, end: 20230302
  2. INFLECTRA [Suspect]
     Active Substance: INFLIXIMAB-DYYB
     Dosage: 10 MG/KG, EVERY 8 WEEKS
     Route: 042
     Dates: start: 20230315
  3. INFLECTRA [Suspect]
     Active Substance: INFLIXIMAB-DYYB
     Dosage: 10 MG/KG, EVERY 8 WEEKS
     Route: 042
     Dates: start: 20230927
  4. INFLECTRA [Suspect]
     Active Substance: INFLIXIMAB-DYYB
     Dosage: 10 MG/KG (720 MG), EVERY 8 WEEKS (3 WEEKS AND 1 DAY)
     Route: 042
     Dates: start: 20231019
  5. INFLECTRA [Suspect]
     Active Substance: INFLIXIMAB-DYYB
     Dosage: 10 MG/KG (720 MG), EVERY 8 WEEKS (3 WEEKS AND 1 DAY)
     Route: 042
     Dates: start: 20231019
  6. MESALAMINE [Concomitant]
     Active Substance: MESALAMINE
     Dosage: 2400 MG
     Dates: start: 20220315
  7. PREDNISONE [Concomitant]
     Active Substance: PREDNISONE
     Dosage: 1 DF
     Dates: start: 202203

REACTIONS (6)
  - Condition aggravated [Not Recovered/Not Resolved]
  - Off label use [Unknown]
  - Off label use [Unknown]
  - Off label use [Unknown]
  - Intentional product use issue [Unknown]
  - Anorectal disorder [Unknown]

NARRATIVE: CASE EVENT DATE: 20230101
